FAERS Safety Report 4617442-1 (Version None)
Quarter: 2005Q1

REPORT INFORMATION
  Report Type: 
  Country: None (occurrence: None)
  Receive Date: 20050318
  Receipt Date: 20050314
  Transmission Date: 20050727
  Serious: Yes (Life-Threatening)
  Sender: FDA-Public Use
  Company Number: 2005-FF-00001FF

PATIENT
  Age: 38 Year
  Sex: Female

DRUGS (3)
  1. VIRAMUNE [Suspect]
     Indication: HIV INFECTION
     Dosage: 400 MG (200 MG) PO
     Route: 048
     Dates: end: 20041201
  2. VIDEX [Concomitant]
  3. ZERIT [Concomitant]

REACTIONS (7)
  - ANAEMIA [None]
  - HAEMATEMESIS [None]
  - HEPATIC CIRRHOSIS [None]
  - HEPATIC STEATOSIS [None]
  - MELAENA [None]
  - PORTAL HYPERTENSION [None]
  - VARICES OESOPHAGEAL [None]
